FAERS Safety Report 5029191-9 (Version None)
Quarter: 2006Q2

REPORT INFORMATION
  Report Type: 
  Country: None (occurrence: None)
  Receive Date: 20060619
  Receipt Date: 20060424
  Transmission Date: 20061013
  Serious: Yes (Other)
  Sender: FDA-Public Use
  Company Number: US-JNJFOC-20060405277

PATIENT
  Age: 38 Year
  Sex: Female
  Weight: 62.6 kg

DRUGS (2)
  1. TOPAMAX [Suspect]
     Indication: DRUG USE FOR UNKNOWN INDICATION
  2. LUNESTA [Suspect]
     Indication: INSOMNIA

REACTIONS (4)
  - BLINDNESS UNILATERAL [None]
  - MIGRAINE [None]
  - PARAESTHESIA [None]
  - VERTIGO [None]
